FAERS Safety Report 15365988 (Version 1)
Quarter: 2018Q3

REPORT INFORMATION
  Report Type: Spontaneous
  Country: US (occurrence: US)
  Receive Date: 20180831
  Receipt Date: 20180831
  Transmission Date: 20181010
  Serious: Yes (Hospitalization)
  Sender: FDA-Public Use
  Company Number: None

PATIENT
  Age: 89 Year
  Sex: Female
  Weight: 53.07 kg

DRUGS (2)
  1. VALSARTAN HYDROCHLOROTH 320?25 MG [Suspect]
     Active Substance: HYDROCHLOROTHIAZIDE\VALSARTAN
     Indication: MYOCARDIAL INFARCTION
     Dosage: ?          QUANTITY:1 DF DOSAGE FORM;?
     Route: 048
  2. VALSARTAN HYDROCHLOROTH 320?25 MG [Suspect]
     Active Substance: HYDROCHLOROTHIAZIDE\VALSARTAN
     Indication: HYPERTENSION
     Dosage: ?          QUANTITY:1 DF DOSAGE FORM;?
     Route: 048

REACTIONS (7)
  - Memory impairment [None]
  - Drug dose omission [None]
  - Malaise [None]
  - Blood pressure increased [None]
  - Cardiac disorder [None]
  - Myocardial infarction [None]
  - Cardiac failure [None]
